FAERS Safety Report 4314685-1 (Version None)
Quarter: 2004Q1

REPORT INFORMATION
  Report Type: 
  Country: None (occurrence: None)
  Receive Date: 20040308
  Receipt Date: 20040301
  Transmission Date: 20041129
  Serious: No
  Sender: FDA-Public Use
  Company Number: 2004GB00521

PATIENT
  Age: 78 Year
  Sex: Male
  Weight: 66.4 kg

DRUGS (5)
  1. SYMBICORT [Suspect]
     Indication: ASTHMA
     Dosage: 200/6 MG
     Dates: start: 20040119, end: 20040122
  2. PREDNISOLONE [Concomitant]
  3. OXIS [Concomitant]
  4. VENTOLIN [Concomitant]
  5. BECLOMETHASONE DIPROPIONATE [Concomitant]

REACTIONS (2)
  - CHEST PAIN [None]
  - DYSPNOEA [None]
